FAERS Safety Report 4590953-3 (Version None)
Quarter: 2005Q1

REPORT INFORMATION
  Report Type: 
  Country: None (occurrence: None)
  Receive Date: 20050225
  Receipt Date: 20050114
  Transmission Date: 20050727
  Serious: Yes (Other)
  Sender: FDA-Public Use
  Company Number: SE-NOVOPROD-241679

PATIENT
  Age: 7 Month
  Sex: Female
  Weight: 10 kg

DRUGS (1)
  1. VAGIFEM [Suspect]
     Indication: VULVOVAGINAL DRYNESS
     Route: 063

REACTIONS (3)
  - BREAST SWELLING [None]
  - DRUG EXPOSURE VIA BREAST MILK [None]
  - HYPERTROPHY BREAST [None]
